FAERS Safety Report 8223374-2 (Version None)
Quarter: 2012Q1

REPORT INFORMATION
  Report Type: 
  Country: None (occurrence: None)
  Receive Date: 20120321
  Receipt Date: 20120313
  Transmission Date: 20120608
  Serious: Yes (Other)
  Sender: FDA-Public Use
  Company Number: US-CELGENEUS-163-21880-12022869

PATIENT
  Sex: Male

DRUGS (5)
  1. AMBIEN [Concomitant]
     Indication: INSOMNIA
     Dosage: 10 MILLIGRAM
     Route: 048
  2. REVLIMID [Suspect]
     Indication: MULTIPLE MYELOMA
     Dosage: 5 MILLIGRAM
     Route: 048
     Dates: start: 20110124
  3. ASPIRIN [Concomitant]
     Dosage: 81 MILLIGRAM
     Route: 048
  4. NAPROXEN [Concomitant]
     Dosage: 250 MILLIGRAM
     Route: 048
  5. LEVOFLOXACIN [Concomitant]
     Dosage: 500 MILLIGRAM
     Route: 048

REACTIONS (1)
  - CALCULUS BLADDER [None]
